FAERS Safety Report 18398275 (Version 1)
Quarter: 2020Q4

REPORT INFORMATION
  Report Type: Spontaneous
  Country: US (occurrence: US)
  Receive Date: 20201019
  Receipt Date: 20201019
  Transmission Date: 20210114
  Serious: Yes (Hospitalization)
  Sender: FDA-Public Use
  Company Number: None

PATIENT
  Age: 63 Year
  Sex: Female
  Weight: 60.8 kg

DRUGS (1)
  1. FEMARA [Suspect]
     Active Substance: LETROZOLE
     Indication: PRODUCT USED FOR UNKNOWN INDICATION
     Dates: end: 20180314

REACTIONS (7)
  - Renal injury [None]
  - Disease progression [None]
  - Urinary tract infection [None]
  - Multiple-drug resistance [None]
  - Oedema peripheral [None]
  - Anaemia [None]
  - Urinary tract obstruction [None]

NARRATIVE: CASE EVENT DATE: 20180426
